FAERS Safety Report 19475738 (Version 4)
Quarter: 2021Q3

REPORT INFORMATION
  Report Type: Spontaneous
  Country: JP (occurrence: JP)
  Receive Date: 20210629
  Receipt Date: 20210823
  Transmission Date: 20211014
  Serious: Yes (Death, Hospitalization, Other)
  Sender: FDA-Public Use
  Company Number: JP-AMGEN-JPNSP2021099666

PATIENT
  Age: 95 Year
  Sex: Male

DRUGS (2)
  1. ROMIPLATE [Suspect]
     Active Substance: ROMIPLOSTIM
     Dosage: 6 MICROGRAM/KILOGRAM
     Route: 058
     Dates: start: 20210625
  2. ROMIPLATE [Suspect]
     Active Substance: ROMIPLOSTIM
     Indication: IMMUNE THROMBOCYTOPENIA
     Dosage: 10 MICROGRAM/KILOGRAM
     Route: 058
     Dates: start: 20210618

REACTIONS (2)
  - Cholangitis sclerosing [Not Recovered/Not Resolved]
  - Oedema [Fatal]

NARRATIVE: CASE EVENT DATE: 20210622
